FAERS Safety Report 11841943 (Version 1)
Quarter: 2015Q4

REPORT INFORMATION
  Report Type: Spontaneous
  Country: US (occurrence: US)
  Receive Date: 20151216
  Receipt Date: 20151216
  Transmission Date: 20160305
  Serious: No
  Sender: FDA-Public Use
  Company Number: US-RB-072093-15

PATIENT
  Age: 20 Year
  Sex: Female

DRUGS (2)
  1. IBUPROPHEN [Suspect]
     Active Substance: IBUPROFEN
     Indication: PRODUCT USED FOR UNKNOWN INDICATION
     Dosage: DOSE UNK, UNITS UNK, FREQUENCY UNK
     Route: 065
  2. DELSYM [Suspect]
     Active Substance: DEXTROMETHORPHAN
     Indication: PRODUCT USED FOR UNKNOWN INDICATION
     Dosage: 10ML. 10ML EVERY 12HRS. SHE LAST TOOK THE PRODUCT ON 30-DEC-2014 AT 08:00AM.,BID
     Route: 065
     Dates: start: 20141228

REACTIONS (2)
  - Dermatitis contact [None]
  - Urticaria [Not Recovered/Not Resolved]

NARRATIVE: CASE EVENT DATE: 20141230
